FAERS Safety Report 26157665 (Version 1)
Quarter: 2025Q4

REPORT INFORMATION
  Report Type: Spontaneous
  Country: US (occurrence: None)
  Receive Date: 20251212
  Receipt Date: 20251212
  Transmission Date: 20260117
  Serious: No
  Sender: FDA-CTU
  Company Number: None

PATIENT
  Age: 30 Year
  Sex: Female
  Weight: 67.5 kg

DRUGS (2)
  1. ADDERALL [Suspect]
     Active Substance: AMPHETAMINE ASPARTATE\AMPHETAMINE SULFATE\DEXTROAMPHETAMINE SACCHARATE\DEXTROAMPHETAMINE SULFATE
     Indication: Attention deficit hyperactivity disorder
     Dosage: OTHER QUANTITY : 1 TABLET(S);?FREQUENCY : TWICE A DAY;
     Route: 048
  2. B12 [Concomitant]

REACTIONS (5)
  - Paralysis [None]
  - Mental impairment [None]
  - Dyspnoea [None]
  - Brain fog [None]
  - Raynaud^s phenomenon [None]

NARRATIVE: CASE EVENT DATE: 20251211
